FAERS Safety Report 8887100 (Version 2)
Quarter: 2012Q4

REPORT INFORMATION
  Report Type: 
  Country: US (occurrence: US)
  Receive Date: 20121105
  Receipt Date: 20121205
  Transmission Date: 20130627
  Serious: Yes (Other)
  Sender: FDA-Public Use
  Company Number: PHEH2012US021554

PATIENT
  Sex: Female

DRUGS (5)
  1. TEGRETOL-XR [Suspect]
     Route: 048
  2. KLONOPIN [Concomitant]
  3. MAGNESIUM [Concomitant]
  4. ANTIFUNGAL DRUGS [Concomitant]
  5. YEAST [Concomitant]

REACTIONS (2)
  - Convulsion [Unknown]
  - Drug ineffective [Unknown]
